FAERS Safety Report 16375709 (Version 1)
Quarter: 2019Q2

REPORT INFORMATION
  Report Type: Spontaneous
  Country: IN (occurrence: IN)
  Receive Date: 20190531
  Receipt Date: 20190531
  Transmission Date: 20190711
  Serious: Yes (Other)
  Sender: FDA-Public Use
  Company Number: IN-ALVOGEN-2019-ALVOGEN-099849

PATIENT
  Age: 84 Year
  Sex: Female

DRUGS (1)
  1. VORICONAZOLE. [Suspect]
     Active Substance: VORICONAZOLE
     Indication: ENDOPHTHALMITIS
     Dosage: 14 INTRAVITREAL INJECTIONS OF VORICONAZOLE ON ALTERNATE DAYS WERE ADMINISTERED VIA THE LIMBAL ROUTE
     Route: 031

REACTIONS (1)
  - Corneal bleeding [Recovering/Resolving]
